FAERS Safety Report 5068011-3 (Version None)
Quarter: 2006Q3

REPORT INFORMATION
  Report Type: 
  Country: None (occurrence: None)
  Receive Date: 20060731
  Receipt Date: 20060717
  Transmission Date: 20061208
  Serious: Yes (Other)
  Sender: FDA-Public Use
  Company Number: 2006090981

PATIENT
  Age: 49 Year
  Sex: Female

DRUGS (6)
  1. BEXTRA [Suspect]
     Indication: ARTHRALGIA
     Dosage: 10 MG (10 MG, 1 IN 1 D)
     Dates: start: 20030106
  2. VIOXX [Concomitant]
  3. MORPHINE [Concomitant]
  4. OXYCONTIN [Concomitant]
  5. PERCOCET [Concomitant]
  6. ACETAMINOPHEN [Concomitant]

REACTIONS (2)
  - LIMB INJURY [None]
  - TRANSIENT ISCHAEMIC ATTACK [None]
